FAERS Safety Report 4948644-2 (Version None)
Quarter: 2006Q1

REPORT INFORMATION
  Report Type: 
  Country: None (occurrence: None)
  Receive Date: 20060201
  Receipt Date: 20051121
  Transmission Date: 20060701
  Serious: No
  Sender: FDA-Public Use
  Company Number: 2005PV004636

PATIENT
  Age: 56 Year
  Sex: Female
  Weight: 62.1428 kg

DRUGS (1)
  1. BYETTA [Suspect]
     Indication: INSULIN RESISTANCE
     Dosage: 5 MCG;BID;SC
     Route: 058
     Dates: start: 20051107

REACTIONS (5)
  - DECREASED APPETITE [None]
  - HYPERAESTHESIA [None]
  - INFREQUENT BOWEL MOVEMENTS [None]
  - PERIPHERAL COLDNESS [None]
  - THERAPEUTIC RESPONSE UNEXPECTED [None]
